FAERS Safety Report 9106893 (Version 2)
Quarter: 2013Q1

REPORT INFORMATION
  Report Type: Spontaneous
  Country: US (occurrence: US)
  Receive Date: 20130221
  Receipt Date: 20130305
  Transmission Date: 20140127
  Serious: No
  Sender: FDA-Public Use
  Company Number: US-BAYER-2013-013482

PATIENT
  Age: 82 Year
  Sex: Male

DRUGS (2)
  1. DESONATE GEL [Suspect]
     Indication: PSORIASIS
     Dosage: UNK
     Route: 061
     Dates: start: 201212
  2. DESONATE GEL [Suspect]
     Indication: PSORIASIS
     Dosage: UNK

REACTIONS (5)
  - Renal pain [None]
  - Dermatitis acneiform [Recovered/Resolved]
  - Skin fissures [None]
  - Erythema [Not Recovered/Not Resolved]
  - Pain in extremity [Not Recovered/Not Resolved]
